FAERS Safety Report 10649628 (Version 1)
Quarter: 2014Q4

REPORT INFORMATION
  Report Type: Spontaneous
  Country: US (occurrence: None)
  Receive Date: 20141211
  Receipt Date: 20141211
  Transmission Date: 20150529
  Serious: No
  Sender: FDA-Public Use
  Company Number: None

PATIENT
  Age: 58 Year
  Sex: Male
  Weight: 77.1 kg

DRUGS (1)
  1. IRINOTECAN [Suspect]
     Active Substance: IRINOTECAN
     Indication: PANCREATIC CARCINOMA
     Route: 042
     Dates: start: 20141117

REACTIONS (3)
  - Nausea [None]
  - Diabetic ketoacidosis [None]
  - Vomiting [None]

NARRATIVE: CASE EVENT DATE: 20141123
